FAERS Safety Report 6432511-1 (Version None)
Quarter: 2009Q4

REPORT INFORMATION
  Report Type: 
  Country: None (occurrence: None)
  Receive Date: 20091109
  Receipt Date: 20091027
  Transmission Date: 20100525
  Serious: Yes (Other)
  Sender: FDA-Public Use
  Company Number: US-PFIZER INC-2007000878

PATIENT
  Sex: Female
  Weight: 63.502 kg

DRUGS (11)
  1. CHANTIX [Suspect]
     Dosage: UNK
     Dates: start: 20061124, end: 20090101
  2. PAXIL [Concomitant]
     Indication: ANXIETY
  3. PROMETHAZINE HCL [Concomitant]
  4. RHINOCORT [Concomitant]
  5. ZYRTEC [Concomitant]
  6. ACETYLSALICYLIC ACID SRT [Concomitant]
  7. PREMARIN [Concomitant]
  8. LOPERAMIDE [Concomitant]
  9. TIAZAC [Concomitant]
     Indication: CARDIAC DISORDER
  10. DIAZEPAM [Concomitant]
     Indication: SLEEP DISORDER
     Dosage: UNK
  11. AMITRIPTYLINE [Concomitant]
     Indication: DEPRESSION
     Dosage: UNK

REACTIONS (9)
  - AGGRESSION [None]
  - BALANCE DISORDER [None]
  - FALL [None]
  - HEARING IMPAIRED [None]
  - LIP AND/OR ORAL CAVITY CANCER [None]
  - NERVOUSNESS [None]
  - POLYURIA [None]
  - TONGUE CYST [None]
  - WEIGHT INCREASED [None]
